FAERS Safety Report 4982284-4 (Version None)
Quarter: 2006Q2

REPORT INFORMATION
  Report Type: 
  Country: None (occurrence: None)
  Receive Date: 20060425
  Receipt Date: 20060413
  Transmission Date: 20061013
  Serious: Yes (Hospitalization)
  Sender: FDA-Public Use
  Company Number: DE-ROCHE-444572

PATIENT
  Age: 61 Year
  Sex: Female

DRUGS (40)
  1. ZENAPAX [Suspect]
     Route: 042
     Dates: start: 20040930, end: 20040930
  2. ZENAPAX [Suspect]
     Route: 042
     Dates: start: 20041007, end: 20041007
  3. MYCOPHENOLATE MOFETIL [Suspect]
     Route: 042
     Dates: start: 20040930, end: 20040930
  4. MYCOPHENOLATE MOFETIL [Suspect]
     Route: 042
     Dates: start: 20041001, end: 20041005
  5. MYCOPHENOLATE MOFETIL [Suspect]
     Route: 048
     Dates: start: 20041006
  6. TACROLIMUS [Suspect]
     Dosage: ADJUSTMENT TO REACH PREDEFINED TARGET LEVELS.
     Route: 048
     Dates: start: 20041005
  7. METHYLPREDNISOLONE [Suspect]
     Dosage: TAPER ACCORDING TO LOCAL PROTOCOL
     Route: 065
     Dates: start: 20040930
  8. PANTOPRAZOL [Concomitant]
     Indication: PROPHYLAXIS
     Dates: start: 20041001
  9. ACETYLCYSTEINE [Concomitant]
     Dates: start: 20040930, end: 20041014
  10. DALTEPARIN SODIUM [Concomitant]
     Indication: PROPHYLAXIS
     Dates: start: 20041011, end: 20041020
  11. COTRIM [Concomitant]
     Indication: PROPHYLAXIS
     Dates: start: 20041002
  12. FUROSEMIDE [Concomitant]
     Dates: start: 20040930
  13. ITRACONAZOL [Concomitant]
     Indication: PROPHYLAXIS
     Dates: start: 20040930, end: 20041020
  14. URSODEOXYCHOLIC ACID [Concomitant]
     Indication: CHOLESTASIS
     Dates: start: 20041002, end: 20041026
  15. PARACETAMOL [Concomitant]
     Indication: ABDOMINAL PAIN
     Dosage: STOPPED ON 5 OCTOBER 2004 AND RE-STARTED ON 11 OCTOBER.
     Dates: start: 20040930, end: 20041018
  16. ZOLPIDEM TARTRATE [Concomitant]
     Dosage: STOPPED ON 4 OCTOBER 2004 AND RE-STARTED ON 22 OCTOBER 2004.
     Dates: start: 20041004, end: 20041030
  17. CIPROFLOXACIN HCL [Concomitant]
     Dosage: STOPPED ON 27 OCTOBER 2004 AND RE-STARTED ON 15 NOVEMBER 2004.
     Dates: start: 20041022, end: 20041119
  18. LORAZEPAM [Concomitant]
     Indication: AGITATION
     Dates: start: 20041012, end: 20041013
  19. ENOXAPARIN NA [Concomitant]
     Indication: PROPHYLAXIS
     Dates: start: 20041007, end: 20041010
  20. CLONIDIN [Concomitant]
     Indication: HYPERTENSION
     Dates: start: 20041010, end: 20041010
  21. AMPHOTERICIN B [Concomitant]
     Indication: ANTIFUNGAL PROPHYLAXIS
     Dates: start: 20040930, end: 20041005
  22. HEXETIDIN [Concomitant]
     Indication: INFECTION PROPHYLAXIS
     Dates: start: 20040930, end: 20041005
  23. NISTATIN [Concomitant]
     Indication: ANTIFUNGAL PROPHYLAXIS
     Dates: start: 20041002, end: 20041007
  24. ALBUMIN (HUMAN) [Concomitant]
     Dates: start: 20040930, end: 20041001
  25. CEFUROXIME [Concomitant]
     Indication: INFECTION PROPHYLAXIS
     Dates: start: 20041003, end: 20041004
  26. MUPIROCIN [Concomitant]
     Indication: INFECTION PROPHYLAXIS
     Dates: start: 20040930, end: 20041002
  27. ITRACONAZOL [Concomitant]
     Indication: ANTIFUNGAL PROPHYLAXIS
     Dates: start: 20040930, end: 20041020
  28. 1 CONCOMITANT DRUG [Concomitant]
     Indication: INFECTION PROPHYLAXIS
     Dosage: REPORTED AS SDD CAPSULES.
     Dates: start: 20040930, end: 20041003
  29. INSULIN [Concomitant]
     Indication: BLOOD GLUCOSE INCREASED
     Dates: start: 20040930, end: 20041001
  30. PROPOFOL [Concomitant]
     Indication: SEDATION
     Dates: start: 20040930, end: 20041001
  31. METAMIZOL [Concomitant]
     Indication: ABDOMINAL PAIN
     Dosage: STOPPED ON 7 OCTOBER 2004 AND RE-STARTED ON 13 OCTOBER 2004.
     Dates: start: 20041005, end: 20041026
  32. OXAZEPAM [Concomitant]
     Indication: AGITATION
     Dates: start: 20041002, end: 20041002
  33. BROMAZEPAM [Concomitant]
     Dates: start: 20041003, end: 20041003
  34. TRAMADOL HCL [Concomitant]
     Indication: ABDOMINAL PAIN
     Dates: start: 20041005, end: 20041020
  35. PIRITRAMID [Concomitant]
     Dosage: STOPPED ON 3 OCTOBER 2004 AND RE-STARTED ON 17 OCTOBER 2004.
     Dates: start: 20040930, end: 20041017
  36. LORAZEPAM [Concomitant]
     Dates: start: 20041012, end: 20041013
  37. MEZLOCILLIN [Concomitant]
     Dates: start: 20041009, end: 20041014
  38. ALLOPURINOL [Concomitant]
     Indication: PAIN
     Dates: start: 20041012, end: 20041020
  39. VALDECOXIB [Concomitant]
     Indication: PAIN
     Dates: start: 20041012, end: 20041019
  40. 1 CONCOMITANT DRUG [Concomitant]
     Indication: HAEMORRHAGE
     Dosage: REPORTED AS DESMOPRESSION.
     Dates: start: 20041001, end: 20041001

REACTIONS (3)
  - HEPATIC STEATOSIS [None]
  - INFECTION [None]
  - TRANSAMINASES INCREASED [None]
